FAERS Safety Report 9462477 (Version 1)
Quarter: 2013Q3

REPORT INFORMATION
  Report Type: Report from Study
  Country: CA (occurrence: CA)
  Receive Date: 20130816
  Receipt Date: 20130816
  Transmission Date: 20140515
  Serious: Yes (Hospitalization)
  Sender: FDA-Public Use
  Company Number: CA-JNJFOC-20130805213

PATIENT
  Age: 22 Year
  Sex: Male
  Weight: 73.4 kg

DRUGS (6)
  1. REMICADE [Suspect]
     Indication: CROHN^S DISEASE
     Route: 042
     Dates: start: 2008
  2. SOLU CORTEF [Concomitant]
     Route: 065
  3. IRON [Concomitant]
     Route: 065
  4. B COMPLEX WITH VITAMIN C [Concomitant]
     Route: 065
  5. BENADRYL [Concomitant]
     Route: 065
  6. VITAMIN D [Concomitant]
     Route: 065

REACTIONS (1)
  - Gastrointestinal disorder [Recovered/Resolved]
